FAERS Safety Report 8459971 (Version 2)
Quarter: 2013Q1

REPORT INFORMATION
  Report Type: Spontaneous
  Country: US (occurrence: US)
  Receive Date: 20120314
  Receipt Date: 20130311
  Transmission Date: 20140127
  Serious: Yes (Disabling, Other)
  Sender: FDA-Public Use
  Company Number: US-ASTRAZENECA-2012SE15152

PATIENT
  Age: 56 Year
  Sex: Female
  Weight: 68 kg

DRUGS (10)
  1. NEXIUM [Suspect]
     Indication: GASTROOESOPHAGEAL REFLUX DISEASE
     Route: 048
  2. CRESTOR [Suspect]
     Indication: BLOOD CHOLESTEROL INCREASED
     Route: 048
  3. CELEBREX [Suspect]
     Indication: EHLERS-DANLOS SYNDROME
     Route: 065
     Dates: start: 1996
  4. ZETIA [Suspect]
     Indication: BLOOD CHOLESTEROL INCREASED
     Route: 065
  5. VITAMIN D [Concomitant]
     Indication: OSTEOPENIA
  6. FLORICET [Concomitant]
     Indication: MIGRAINE
  7. LIVOLA [Concomitant]
     Indication: BLOOD CHOLESTEROL INCREASED
  8. FLEXERIL [Concomitant]
     Indication: DEPRESSION
  9. PAXIL [Concomitant]
     Indication: DEPRESSION
     Dates: start: 2010
  10. CLONAZEPAM [Concomitant]
     Indication: ANXIETY

REACTIONS (10)
  - Anxiety [Unknown]
  - Migraine [Unknown]
  - Intervertebral disc protrusion [Unknown]
  - Pain [Unknown]
  - Abasia [Unknown]
  - Depression [Unknown]
  - Meniscus injury [Unknown]
  - Blood cholesterol increased [Unknown]
  - Myalgia [Unknown]
  - Abdominal discomfort [Unknown]
